FAERS Safety Report 10089138 (Version 2)
Quarter: 2014Q2

REPORT INFORMATION
  Report Type: Report from Study
  Country: US (occurrence: US)
  Receive Date: 20140421
  Receipt Date: 20140421
  Transmission Date: 20141212
  Serious: Yes (Death, Hospitalization)
  Sender: FDA-Public Use
  Company Number: US-SA-2014SA025385

PATIENT
  Sex: Male

DRUGS (17)
  1. CABAZITAXEL [Suspect]
     Indication: PROSTATE CANCER METASTATIC
     Route: 042
     Dates: start: 20140131, end: 20140131
  2. CABAZITAXEL [Suspect]
     Indication: PROSTATE CANCER METASTATIC
     Route: 042
     Dates: start: 20140314, end: 20140314
  3. ASPIRIN [Concomitant]
     Indication: CARDIAC DISORDER
     Route: 048
     Dates: start: 201001
  4. ATORVASTATIN [Concomitant]
     Indication: HYPERLIPIDAEMIA
     Route: 048
     Dates: start: 201101
  5. COREG [Concomitant]
     Indication: HYPERTENSION
     Route: 048
     Dates: start: 201101
  6. DOXAZOSIN [Concomitant]
     Indication: HYPERTENSION
     Route: 048
     Dates: start: 201101
  7. EXFORGE [Concomitant]
     Indication: HYPERTENSION
     Dosage: DOSE:10/320 MG
     Route: 048
     Dates: start: 201101
  8. FISH OIL [Concomitant]
     Indication: NUTRITIONAL SUPPLEMENTATION
     Route: 048
     Dates: start: 200301
  9. FLUTICASONE PROPIONATE [Concomitant]
     Indication: SEASONAL ALLERGY
     Route: 065
     Dates: start: 201101
  10. LUPRON [Concomitant]
     Indication: PROSTATE CANCER
     Dosage: FREQUENCY: Q3M
     Route: 030
     Dates: start: 200805, end: 20140221
  11. MELATONIN [Concomitant]
     Indication: INSOMNIA
     Dosage: DOSE: PRN NIGHTLY
     Route: 065
     Dates: start: 200301
  12. MULTIVITAMINS [Concomitant]
     Indication: ROUTINE HEALTH MAINTENANCE
     Dosage: DOSE: 1 TABLET
     Route: 048
     Dates: start: 199301
  13. ALL OTHER THERAPEUTIC PRODUCTS [Concomitant]
     Indication: RESPIRATORY TRACT CONGESTION
     Dosage: DOSE: 1 PUFF
     Route: 065
     Dates: start: 201101
  14. SPIRIVA [Concomitant]
     Dosage: DOSE: 1 PUFF DAILY
     Route: 065
     Dates: start: 201101
  15. SPIRONOLACTONE [Concomitant]
     Indication: HYPERTENSION
     Route: 048
     Dates: start: 201101
  16. VENLAFAXINE HYDROCHLORIDE [Concomitant]
     Indication: ANXIETY
     Route: 048
     Dates: start: 200901
  17. PREDNISONE [Concomitant]
     Indication: PROSTATE CANCER
     Route: 048
     Dates: start: 20131120

REACTIONS (2)
  - Death [Fatal]
  - Flank pain [Unknown]
